FAERS Safety Report 9741773 (Version 1)
Quarter: 2013Q4

REPORT INFORMATION
  Report Type: Spontaneous
  Country: FR (occurrence: FR)
  Receive Date: 20131210
  Receipt Date: 20131210
  Transmission Date: 20140711
  Serious: Yes (Hospitalization)
  Sender: FDA-Public Use
  Company Number: FR-009507513-1312FRA000506

PATIENT
  Age: 93 Year
  Sex: Male

DRUGS (1)
  1. NORSET [Suspect]
     Indication: DEPRESSION
     Dosage: 150 MG, ONCE
     Route: 048
     Dates: start: 20131107, end: 20131107

REACTIONS (2)
  - Somnolence [Recovered/Resolved]
  - Accidental overdose [Recovered/Resolved]
